FAERS Safety Report 5921341-2 (Version None)
Quarter: 2008Q4

REPORT INFORMATION
  Report Type: 
  Country: None (occurrence: None)
  Receive Date: 20081014
  Receipt Date: 20080929
  Transmission Date: 20090506
  Serious: Yes (Hospitalization, Other)
  Sender: FDA-Public Use
  Company Number: PHHY2008FR12325

PATIENT
  Age: 75 Year
  Sex: Female

DRUGS (7)
  1. LUCENTIS [Suspect]
     Indication: MACULAR DEGENERATION
     Dosage: 0.05 ML DAILY; EY
     Route: 047
     Dates: start: 20080105, end: 20080105
  2. LUCENTIS [Suspect]
     Indication: MACULAR DEGENERATION
     Dosage: 0.05 ML, DAILY EY
     Route: 047
     Dates: start: 20071130, end: 20071130
  3. VISUDYNE [Suspect]
     Indication: MACULAR DEGENERATION
     Dates: start: 20071122, end: 20071122
  4. PROPRANOLOL [Concomitant]
  5. MONO-TILDIEM - SLOW RELEASE [Concomitant]
  6. SPIRONOLACTONE [Concomitant]
  7. PRAVASTATIN [Concomitant]

REACTIONS (8)
  - ARTHRALGIA [None]
  - ASTHENIA [None]
  - FATIGUE [None]
  - INFLAMMATION [None]
  - MUSCULOSKELETAL PAIN [None]
  - MYALGIA [None]
  - PAIN IN EXTREMITY [None]
  - RHINORRHOEA [None]
